FAERS Safety Report 5821354-5 (Version None)
Quarter: 2008Q3

REPORT INFORMATION
  Report Type: 
  Country: None (occurrence: None)
  Receive Date: 20080724
  Receipt Date: 20080711
  Transmission Date: 20090109
  Serious: Yes (Hospitalization)
  Sender: FDA-Public Use
  Company Number: FR-GENENTECH-264781

PATIENT
  Age: 57 Year
  Sex: Male

DRUGS (2)
  1. RITUXIMAB [Suspect]
     Indication: LYMPHOMA
     Dosage: 640 MG, UNK
     Route: 042
     Dates: start: 20070711, end: 20070928
  2. FLUDARABINE PHOSPHATE [Concomitant]
     Indication: LYMPHOMA
     Dosage: 150 MG, UNK
     Dates: start: 20070711

REACTIONS (1)
  - MYELODYSPLASTIC SYNDROME [None]
